FAERS Safety Report 12832964 (Version 2)
Quarter: 2016Q4

REPORT INFORMATION
  Report Type: Spontaneous
  Country: US (occurrence: US)
  Receive Date: 20161010
  Receipt Date: 20161101
  Transmission Date: 20170207
  Serious: Yes (Hospitalization, Other)
  Sender: FDA-Public Use
  Company Number: US-SMITH AND NEPHEW, INC-2016SMT00859

PATIENT
  Age: 55 Year
  Sex: Male

DRUGS (2)
  1. REGRANEX [Suspect]
     Active Substance: BECAPLERMIN
     Indication: NEUROPATHY PERIPHERAL
  2. REGRANEX [Suspect]
     Active Substance: BECAPLERMIN
     Indication: ULCER
     Dosage: UNK, 1X/DAY
     Route: 061
     Dates: start: 20160801, end: 201609

REACTIONS (3)
  - Pneumonia viral [Recovering/Resolving]
  - Pulmonary haemorrhage [Recovered/Resolved]
  - Off label use [Recovered/Resolved]

NARRATIVE: CASE EVENT DATE: 201608
